FAERS Safety Report 5336088-3 (Version None)
Quarter: 2007Q2

REPORT INFORMATION
  Report Type: 
  Country: None (occurrence: None)
  Receive Date: 20070228
  Receipt Date: 20061204
  Transmission Date: 20071010
  Serious: Yes (Other)
  Sender: FDA-Public Use
  Company Number: PHO-2006-039

PATIENT
  Age: 76 Year
  Sex: Male

DRUGS (2)
  1. PHOTOFRIN [Suspect]
     Indication: ADENOCARCINOMA
     Dosage: 2MG/KG; IV 1 ADMINISTRATION
     Route: 042
  2. UNSPECIFIED PROTON-PUMP INHIBITOR [Concomitant]

REACTIONS (1)
  - OESOPHAGEAL STENOSIS [None]
